FAERS Safety Report 23901015 (Version 4)
Quarter: 2025Q1

REPORT INFORMATION
  Report Type: Spontaneous
  Country: US (occurrence: US)
  Receive Date: 20240526
  Receipt Date: 20250209
  Transmission Date: 20250409
  Serious: No
  Sender: ROCHE
  Company Number: US-ROCHE-3495660

PATIENT
  Age: 44 Year
  Sex: Female
  Weight: 45.81 kg

DRUGS (1)
  1. OCRELIZUMAB [Suspect]
     Active Substance: OCRELIZUMAB
     Indication: Multiple sclerosis
     Route: 065
     Dates: start: 2021

REACTIONS (3)
  - Maternal exposure before pregnancy [Unknown]
  - Fall [Unknown]
  - Multiple sclerosis [Unknown]
